FAERS Safety Report 7984424-1 (Version None)
Quarter: 2011Q4

REPORT INFORMATION
  Report Type: 
  Country: None (occurrence: None)
  Receive Date: 20111216
  Receipt Date: 20111205
  Transmission Date: 20120403
  Serious: Yes (Hospitalization, Other)
  Sender: FDA-Public Use
  Company Number: DE-ELI_LILLY_AND_COMPANY-DE201108006300

PATIENT
  Age: 73 Year
  Sex: Female

DRUGS (6)
  1. HUMIRA [Concomitant]
  2. DEKRISTOL [Concomitant]
  3. IBUPROFEN [Concomitant]
  4. CALCIUM [Concomitant]
  5. FORTEO [Suspect]
     Indication: OSTEOPOROSIS
     Dosage: UNK, OTHER
     Route: 058
     Dates: start: 20100517, end: 20111001
  6. PREDNISOLONE [Concomitant]
     Dosage: UNK
     Dates: start: 20050101

REACTIONS (7)
  - HOSPITALISATION [None]
  - HIP ARTHROPLASTY [None]
  - ANAEMIA [None]
  - HAEMATOLOGY TEST ABNORMAL [None]
  - RHEUMATIC FEVER [None]
  - HAEMORRHAGE [None]
  - DRUG DOSE OMISSION [None]
